FAERS Safety Report 8790867 (Version 1)
Quarter: 2012Q4

REPORT INFORMATION
  Report Type: Spontaneous
  Country: US (occurrence: None)
  Receive Date: 20120913
  Receipt Date: 20120913
  Transmission Date: 20130627
  Serious: Yes (Other)
  Sender: FDA-Public Use
  Company Number: None

PATIENT
  Age: 5 Year
  Sex: Female

DRUGS (1)
  1. PREDNISOLONE [Suspect]
     Indication: ASTHMATIC ATTACK
     Dosage: 7.5 ml twice daily By mouth
     Route: 048
     Dates: start: 20120905, end: 20120909

REACTIONS (1)
  - Somnambulism [None]
